FAERS Safety Report 23104873 (Version 1)
Quarter: 2023Q4

REPORT INFORMATION
  Report Type: Other
  Country: None (occurrence: US)
  Receive Date: 20231025
  Receipt Date: 20231025
  Transmission Date: 20240109
  Serious: Yes (Death)
  Sender: FDA-Public Use
  Company Number: US-B.Braun Medical Inc.-2147456

PATIENT
  Age: 62 Year
  Sex: Female

DRUGS (5)
  1. METRONIDAZOLE [Suspect]
     Active Substance: METRONIDAZOLE
     Indication: Colitis
  2. CIPROFLOXACIN [Suspect]
     Active Substance: CIPROFLOXACIN
  3. VANCOMYCIN [Suspect]
     Active Substance: VANCOMYCIN
  4. ECULIZUMAB [Concomitant]
     Active Substance: ECULIZUMAB
  5. UNSPECIFIED INGREDIENT [Concomitant]
     Active Substance: UNSPECIFIED INGREDIENT

REACTIONS (5)
  - Off label use [None]
  - Haemolytic uraemic syndrome [None]
  - Escherichia test positive [None]
  - Condition aggravated [None]
  - Multiple organ dysfunction syndrome [None]
